FAERS Safety Report 9085274 (Version 1)
Quarter: 2013Q1

REPORT INFORMATION
  Report Type: Spontaneous
  Country: AU (occurrence: AU)
  Receive Date: 20130130
  Receipt Date: 20130130
  Transmission Date: 20140127
  Serious: Yes (Disabling, Other)
  Sender: FDA-Public Use
  Company Number: PHHY2012AU115018

PATIENT
  Age: 71 Year
  Sex: Female

DRUGS (5)
  1. GLIVEC [Suspect]
     Dosage: 400 MG, BID
     Route: 048
     Dates: start: 201209, end: 20121113
  2. GLIVEC [Suspect]
     Dosage: 400 MG,PER DAY
     Route: 048
     Dates: start: 20121127, end: 20121211
  3. GLIVEC [Suspect]
     Dosage: 200 MG, PER DAY
     Route: 048
     Dates: start: 20130104, end: 20130110
  4. OMPRAZOLE [Concomitant]
     Dosage: UNK UKN, DAILY
     Route: 048
  5. RAMIPRIL [Concomitant]
     Dosage: 5 MG, DAILY
     Route: 048

REACTIONS (4)
  - Rash erythematous [Recovering/Resolving]
  - Rash pruritic [Recovering/Resolving]
  - Rash papular [Recovering/Resolving]
  - Hyperkeratosis [Recovering/Resolving]
